FAERS Safety Report 18863985 (Version 3)
Quarter: 2023Q1

REPORT INFORMATION
  Report Type: Spontaneous
  Country: PL (occurrence: PL)
  Receive Date: 20210209
  Receipt Date: 20230131
  Transmission Date: 20230418
  Serious: Yes (Hospitalization, Other)
  Sender: FDA-Public Use
  Company Number: PL-UCBSA-2020054794

PATIENT
  Age: 68 Year
  Sex: Male

DRUGS (13)
  1. CETIRIZINE HYDROCHLORIDE [Suspect]
     Active Substance: CETIRIZINE HYDROCHLORIDE
     Indication: Pruritus genital
     Dosage: 10 MILLIGRAM, ONCE DAILY (QD)
     Route: 065
  2. CETIRIZINE HYDROCHLORIDE [Suspect]
     Active Substance: CETIRIZINE HYDROCHLORIDE
     Indication: Off label use
     Dosage: OFF LABEL USE FOR INDICATION.
     Route: 065
  3. ATORVASTATIN [Interacting]
     Active Substance: ATORVASTATIN
     Indication: Cerebrovascular accident
     Dosage: 40 MILLIGRAM, ONCE DAILY (QD)
     Route: 048
  4. CIPROFLOXACIN [Interacting]
     Active Substance: CIPROFLOXACIN
     Indication: Infection
     Dosage: 500 MILLIGRAM, 2X/DAY (BID)
     Route: 048
  5. DIAZEPAM [Interacting]
     Active Substance: DIAZEPAM
     Indication: Insomnia
     Dosage: HALF HOUR BEFORE BEDTIME?10 MILLIGRAM, ONCE DAILY (QD)
     Route: 065
  6. FUROSEMIDE [Interacting]
     Active Substance: FUROSEMIDE
     Indication: Cardiovascular disorder
     Dosage: 40 MILLIGRAM
     Route: 048
  7. METOPROLOL [Interacting]
     Active Substance: METOPROLOL
     Indication: Cerebrovascular accident
     Dosage: 100 MILLIGRAM, ONCE DAILY (QD)
     Route: 048
  8. QUETIAPINE [Interacting]
     Active Substance: QUETIAPINE
     Indication: Insomnia
     Dosage: 50 MG AT BEDTIME ONCE DAILY (QD)
     Route: 065
  9. QUETIAPINE [Interacting]
     Active Substance: QUETIAPINE
     Dosage: 25 MG AT BEDTIME, ONCE DAILY (QD)
     Route: 065
  10. RIVAROXABAN [Suspect]
     Active Substance: RIVAROXABAN
     Indication: Cardiovascular disorder
     Dosage: 20 MILLIGRAM
     Route: 048
  11. FLUCONAZOLE [Suspect]
     Active Substance: FLUCONAZOLE
     Indication: Infection
     Dosage: 100 MILLIGRAM, 2X/DAY (BID)
     Route: 048
  12. FLUCONAZOLE [Suspect]
     Active Substance: FLUCONAZOLE
     Dosage: 100 MILLIGRAM
     Route: 065
  13. TRAZODONE HYDROCHLORIDE [Concomitant]
     Active Substance: TRAZODONE HYDROCHLORIDE
     Indication: Insomnia
     Dosage: THREE HOURS BEFORE SLEEPING WAS ADVISED
     Route: 065

REACTIONS (13)
  - Genital haemorrhage [Unknown]
  - Penis injury [Recovered/Resolved]
  - Pruritus genital [Recovered/Resolved]
  - Drug interaction [Unknown]
  - Haemorrhage [Unknown]
  - Pruritus [Unknown]
  - Fall [Unknown]
  - Insomnia [Unknown]
  - Somnolence [Unknown]
  - Drug ineffective [Unknown]
  - Drug level increased [Unknown]
  - Off label use [Unknown]
  - Contraindicated product administered [Unknown]
